FAERS Safety Report 20384609 (Version 7)
Quarter: 2023Q1

REPORT INFORMATION
  Report Type: Report from Study
  Country: US (occurrence: US)
  Receive Date: 20220127
  Receipt Date: 20230118
  Transmission Date: 20230417
  Serious: Yes (Hospitalization, Other)
  Sender: FDA-Public Use
  Company Number: US-TAKEDA-2020TUS026097

PATIENT
  Sex: Female

DRUGS (2)
  1. VEDOLIZUMAB [Suspect]
     Active Substance: VEDOLIZUMAB
     Indication: Crohn^s disease
     Dosage: 300 MILLIGRAM, Q6WEEKS
     Route: 042
     Dates: end: 20211229
  2. VEDOLIZUMAB [Suspect]
     Active Substance: VEDOLIZUMAB
     Dosage: 300 MILLIGRAM, Q6WEEKS
     Route: 042
     Dates: start: 202207

REACTIONS (14)
  - Deep vein thrombosis [Unknown]
  - Pulmonary embolism [Unknown]
  - Crohn^s disease [Unknown]
  - Stress [Unknown]
  - Blood test abnormal [Unknown]
  - Malaise [Unknown]
  - Depressed mood [Unknown]
  - Lung disorder [Unknown]
  - Bowel movement irregularity [Unknown]
  - Discomfort [Unknown]
  - Muscle spasms [Unknown]
  - Fatigue [Unknown]
  - Product dose omission issue [Unknown]
  - Off label use [Unknown]
